FAERS Safety Report 24532898 (Version 1)
Quarter: 2024Q4

REPORT INFORMATION
  Report Type: Spontaneous
  Country: US (occurrence: None)
  Receive Date: 20241021
  Receipt Date: 20241021
  Transmission Date: 20250114
  Serious: Yes (Hospitalization)
  Sender: Public
  Company Number: None

PATIENT
  Age: 69 Year
  Sex: Female

DRUGS (10)
  1. AVONEX [Suspect]
     Active Substance: INTERFERON BETA-1A
     Indication: Bone cancer
     Dosage: FREQUENCY : WEEKLY;?
     Route: 030
     Dates: start: 20200205
  2. ATENOLOL TAB 50MG [Concomitant]
  3. ATORVASTATIN [Concomitant]
     Active Substance: ATORVASTATIN
  4. AVONEX PEN KIT 30MCG [Concomitant]
  5. BACLOFEN [Concomitant]
     Active Substance: BACLOFEN
  6. ELIQUIS [Concomitant]
     Active Substance: APIXABAN
  7. HYDROCOIAPAP TAB 7.5-325 [Concomitant]
  8. MOMETASONE SOL 0.1% [Concomitant]
  9. TAMSULOSIN [Concomitant]
     Active Substance: TAMSULOSIN
  10. TRIAMT/HCTZ TAB 37.5-25 [Concomitant]

REACTIONS (2)
  - Cerebrovascular accident [None]
  - Therapy interrupted [None]

NARRATIVE: CASE EVENT DATE: 20241001
